FAERS Safety Report 11587451 (Version 4)
Quarter: 2015Q4

REPORT INFORMATION
  Report Type: Report from Study
  Country: AU (occurrence: AU)
  Receive Date: 20151001
  Receipt Date: 20151005
  Transmission Date: 20160304
  Serious: Yes (Hospitalization, Other)
  Sender: FDA-Public Use
  Company Number: PHNR2007AU01805

PATIENT
  Age: 24 Year
  Sex: Male

DRUGS (5)
  1. CLOZAPINE. [Suspect]
     Active Substance: CLOZAPINE
     Dosage: 150 TO 300 MG DAILY
     Route: 065
     Dates: start: 20061110
  2. CLOZAPINE. [Suspect]
     Active Substance: CLOZAPINE
     Indication: SCHIZOPHRENIA
     Dosage: 100 MG MANE, 200 MG NOCTE
     Route: 065
     Dates: start: 20060421
  3. CLOZAPINE. [Suspect]
     Active Substance: CLOZAPINE
     Dosage: 600 MG, QD
     Route: 065
     Dates: start: 20060927
  4. CLOZARIL [Suspect]
     Active Substance: CLOZAPINE
     Indication: SCHIZOPHRENIA
     Dosage: 125 TO 350 MG, DAILY
     Route: 048
     Dates: start: 20030805, end: 200508
  5. VALPROATE SODIUM. [Suspect]
     Active Substance: VALPROATE SODIUM
     Indication: PRODUCT USED FOR UNKNOWN INDICATION
     Dosage: 1500 -5000 MG DAILY
     Route: 065

REACTIONS (40)
  - Poor quality sleep [Recovering/Resolving]
  - Type 1 diabetes mellitus [Not Recovered/Not Resolved]
  - Hyponatraemia [Recovered/Resolved]
  - Lymphocyte count increased [Not Recovered/Not Resolved]
  - Neutrophil count increased [Unknown]
  - Psychotic disorder [Recovering/Resolving]
  - Agitation [Unknown]
  - Paranoia [Recovering/Resolving]
  - Mood altered [Recovering/Resolving]
  - Anion gap increased [Unknown]
  - Soliloquy [Unknown]
  - Waist circumference increased [Not Recovered/Not Resolved]
  - Gamma-glutamyltransferase increased [Unknown]
  - Aggression [Recovering/Resolving]
  - Malaise [Recovering/Resolving]
  - Thought blocking [Recovering/Resolving]
  - Blood chloride decreased [Not Recovered/Not Resolved]
  - Monocyte count increased [Unknown]
  - Abnormal behaviour [Recovering/Resolving]
  - Diabetes mellitus inadequate control [Unknown]
  - Blood creatine phosphokinase increased [Not Recovered/Not Resolved]
  - Sedation [Unknown]
  - Irritability [Recovering/Resolving]
  - Hostility [Unknown]
  - Fluid overload [Recovering/Resolving]
  - White blood cell count increased [Not Recovered/Not Resolved]
  - Body temperature decreased [Unknown]
  - Thinking abnormal [Recovering/Resolving]
  - Delusion [Recovering/Resolving]
  - Hallucination, auditory [Recovering/Resolving]
  - Restlessness [Unknown]
  - Schizophrenia [Unknown]
  - Body mass index increased [Not Recovered/Not Resolved]
  - Sinus tachycardia [Not Recovered/Not Resolved]
  - Urine osmolarity increased [Unknown]
  - Antipsychotic drug level increased [Unknown]
  - Insomnia [Unknown]
  - Derailment [Recovering/Resolving]
  - Electrocardiogram abnormal [Unknown]
  - Blood pressure increased [Not Recovered/Not Resolved]

NARRATIVE: CASE EVENT DATE: 200508
